FAERS Safety Report 24938988 (Version 1)
Quarter: 2025Q1

REPORT INFORMATION
  Report Type: Spontaneous
  Country: US (occurrence: US)
  Receive Date: 20250206
  Receipt Date: 20250206
  Transmission Date: 20250409
  Serious: No
  Sender: PFIZER
  Company Number: US-PFIZER INC-202500026479

PATIENT
  Age: 50 Year
  Sex: Female

DRUGS (11)
  1. IBRANCE [Suspect]
     Active Substance: PALBOCICLIB
     Indication: Breast cancer female
     Dates: start: 20211217
  2. LETROZOLE [Concomitant]
     Active Substance: LETROZOLE
  3. XGEVA [Concomitant]
     Active Substance: DENOSUMAB
  4. LUPRON [Concomitant]
     Active Substance: LEUPROLIDE ACETATE
  5. FAMOTIDINE [Concomitant]
     Active Substance: FAMOTIDINE
  6. CHONDROITIN SULFATE (BOVINE)\GLUCOSAMINE SULFATE [Concomitant]
     Active Substance: CHONDROITIN SULFATE (BOVINE)\GLUCOSAMINE SULFATE
  7. TUMS [Concomitant]
     Active Substance: CALCIUM CARBONATE
  8. VITAMINS NOS [Concomitant]
     Active Substance: VITAMINS
  9. MAGNESIUM [Concomitant]
     Active Substance: MAGNESIUM
  10. CALCIUM/VITAMIN D NOS [Concomitant]
  11. FLUORIDEX [Concomitant]

REACTIONS (2)
  - Dyspepsia [Not Recovered/Not Resolved]
  - Stomatitis [Not Recovered/Not Resolved]
